FAERS Safety Report 4451176-1 (Version None)
Quarter: 2004Q3

REPORT INFORMATION
  Report Type: 
  Country: None (occurrence: None)
  Receive Date: 20040915
  Receipt Date: 20040915
  Transmission Date: 20050211
  Serious: Yes (Hospitalization)
  Sender: FDA-Public Use
  Company Number: None

PATIENT
  Sex: Female
  Weight: 65.318 kg

DRUGS (2)
  1. PIOGLITAZONE HCL [Suspect]
     Dosage: 45 MG /QD/PO
     Route: 048
     Dates: start: 20030829
  2. PLACEBO [Suspect]

REACTIONS (2)
  - LUMBAR VERTEBRAL FRACTURE [None]
  - SPINAL COMPRESSION FRACTURE [None]
